FAERS Safety Report 7864805-7 (Version None)
Quarter: 2011Q4

REPORT INFORMATION
  Report Type: 
  Country: None (occurrence: None)
  Receive Date: 20111028
  Receipt Date: 20101011
  Transmission Date: 20120403
  Serious: No
  Sender: FDA-Public Use
  Company Number: US-GLAXOSMITHKLINE-A0850230A

PATIENT
  Age: 93 Year
  Sex: Female

DRUGS (9)
  1. ASPIRIN [Concomitant]
     Dosage: 81MG PER DAY
  2. ADVAIR DISKUS 100/50 [Suspect]
     Indication: CHRONIC OBSTRUCTIVE PULMONARY DISEASE
     Dosage: 1PUFF TWICE PER DAY
     Route: 055
     Dates: start: 20090901
  3. AMLODIPINE [Concomitant]
  4. SIMVASTATIN [Concomitant]
  5. AMIODARONE HCL [Concomitant]
  6. METOPROLOL TARTRATE [Concomitant]
  7. PLAVIX [Concomitant]
  8. HYDROCHLOROTHIAZIDE [Concomitant]
  9. UNKNOWN MEDICATION [Concomitant]

REACTIONS (10)
  - ILL-DEFINED DISORDER [None]
  - CHEST PAIN [None]
  - COUGH [None]
  - MALAISE [None]
  - ANXIETY [None]
  - INCREASED APPETITE [None]
  - POOR QUALITY SLEEP [None]
  - CHEST DISCOMFORT [None]
  - DYSPNOEA [None]
  - PHARYNGEAL ERYTHEMA [None]
